FAERS Safety Report 17352186 (Version 1)
Quarter: 2020Q1

REPORT INFORMATION
  Report Type: Report from Study
  Country: US (occurrence: US)
  Receive Date: 20200130
  Receipt Date: 20200130
  Transmission Date: 20200409
  Serious: Yes (Hospitalization, Other)
  Sender: FDA-Public Use
  Company Number: US-GILEAD-2020-0449039

PATIENT
  Age: 39 Year
  Sex: Male

DRUGS (2)
  1. AMBRISENTAN [Suspect]
     Active Substance: AMBRISENTAN
     Indication: PRODUCT USED FOR UNKNOWN INDICATION
     Dosage: 5 MG, QD
     Route: 048
     Dates: start: 20160914
  2. UPTRAVI [Concomitant]
     Active Substance: SELEXIPAG

REACTIONS (7)
  - Thrombosis [Unknown]
  - Chest pain [Unknown]
  - Heart rate increased [Not Recovered/Not Resolved]
  - Thrombosis in device [Not Recovered/Not Resolved]
  - Myalgia [Not Recovered/Not Resolved]
  - Central venous catheterisation [Unknown]
  - Pain [Not Recovered/Not Resolved]

NARRATIVE: CASE EVENT DATE: 20200101
